FAERS Safety Report 15505631 (Version 1)
Quarter: 2018Q4

REPORT INFORMATION
  Report Type: Report from Study
  Country: DE (occurrence: DE)
  Receive Date: 20181016
  Receipt Date: 20181016
  Transmission Date: 20190205
  Serious: Yes (Other)
  Sender: FDA-Public Use
  Company Number: DE-ACCORD-073133

PATIENT
  Age: 78 Year
  Sex: Male
  Weight: 95 kg

DRUGS (26)
  1. CAPECITABINE. [Suspect]
     Active Substance: CAPECITABINE
     Indication: COLORECTAL CANCER
     Dosage: DAILY DOSE: 4300MG 3WK.?RECEIVED 4000MG 3WK 02-SEP-2016.?3000MG 3WK 14-OCT-16 - 17-NOV-16
     Route: 048
     Dates: start: 20151127, end: 20160512
  2. CIPROFLOXACIN. [Concomitant]
     Active Substance: CIPROFLOXACIN
     Dosage: DAILY DOSE: 500 MG MILLGRAM(S) EVERY DAYS
     Route: 048
     Dates: start: 20170512, end: 20170516
  3. PYRIDOXINE [Concomitant]
     Active Substance: PYRIDOXINE
     Route: 048
     Dates: start: 20161014
  4. TORASEMIDE [Concomitant]
     Active Substance: TORSEMIDE
     Indication: CARDIAC FAILURE
     Dosage: DAILY DOSE: 5 MG MILLGRAM(S) EVERY DAYS
     Route: 048
     Dates: start: 20150909
  5. GRANISETRON [Concomitant]
     Active Substance: GRANISETRON
     Dosage: DAY 1 OF CHEMOTHERAPY
     Route: 042
     Dates: start: 20161128, end: 20170804
  6. PHENPROCOUMON [Concomitant]
     Active Substance: PHENPROCOUMON
     Dosage: ACCORDING TO QUICK VALUE
     Route: 048
  7. THIAMINE. [Concomitant]
     Active Substance: THIAMINE
     Route: 048
     Dates: start: 20170123
  8. DEXAMETHASONE. [Concomitant]
     Active Substance: DEXAMETHASONE
     Indication: INFECTION
     Dosage: DAY 1 AND 2 OF CHEMOTHERAPY
     Route: 048
     Dates: start: 20161128, end: 20170805
  9. HYDROCHLOROTHIAZIDE. [Concomitant]
     Active Substance: HYDROCHLOROTHIAZIDE
     Indication: HYPERTENSION
     Dosage: DAILY DOSE: 25 MG MILLGRAM(S) EVERY DAYS
     Route: 048
     Dates: start: 20150909
  10. BEVACIZUMAB. [Suspect]
     Active Substance: BEVACIZUMAB
     Indication: COLORECTAL CANCER METASTATIC
     Dosage: DAILY DOSE:712.5MG?RECEIVED 712.5MG 3WK 29-JAN-16 + 18-MAR-16, 600MG 3WK 03-FEB-16,
     Route: 042
     Dates: start: 20151127
  11. MORPHINE [Concomitant]
     Active Substance: MORPHINE
     Route: 048
     Dates: start: 20161223
  12. CEFPODOXIME/CEFPODOXIME PROXETIL [Concomitant]
     Dosage: DAILY DOSE: 400 MG EVERY DAYS
     Route: 048
     Dates: start: 20170602, end: 20170612
  13. PHENPROCOUMON [Concomitant]
     Active Substance: PHENPROCOUMON
     Indication: ATRIAL FIBRILLATION
     Dosage: DEPENDING ON QUICK VALUE?ALSO RECEIVED ORALLY
     Route: 058
     Dates: start: 20151218, end: 20160922
  14. BISOPROLOL [Concomitant]
     Active Substance: BISOPROLOL
     Indication: HYPERTENSION
     Dosage: DAILY DOSE: 10 MG MILLGRAM(S) EVERY DAYS
     Route: 048
     Dates: start: 2001
  15. IBUPROFEN. [Concomitant]
     Active Substance: IBUPROFEN
     Route: 048
     Dates: start: 20160226
  16. VOLTAREN [Concomitant]
     Active Substance: DICLOFENAC SODIUM
     Indication: PAIN
     Route: 061
     Dates: start: 20160318
  17. METAMIZOLE SODIUM [Concomitant]
     Active Substance: METAMIZOLE SODIUM
     Route: 048
     Dates: start: 20151123
  18. NOVALGIN (METAMIZOLE SODIUM) [Concomitant]
     Active Substance: METAMIZOLE SODIUM
     Dosage: DAILY DOSE: 1500 MG EVERY DAYS?ALSO RECEIVED ON 06-JUN-2016
     Route: 048
     Dates: start: 20160318
  19. PROTEINS NOS [Concomitant]
     Active Substance: PROTEIN
     Indication: WEIGHT DECREASED
     Route: 048
     Dates: end: 20160923
  20. LINEZOLID. [Concomitant]
     Active Substance: LINEZOLID
     Dosage: DAILY DOSE: 1200 MG MILLGRAM(S) EVERY DAYS
     Route: 048
     Dates: start: 20170331, end: 20170409
  21. ATROPINE. [Concomitant]
     Active Substance: ATROPINE
     Indication: CHOLINERGIC SYNDROME
     Dosage: CYCLICAL, PRIOR TO CHEMOTHERAPY WITH IRINOTECAN,
     Route: 058
     Dates: start: 20161128, end: 20170804
  22. IRINOTECAN [Concomitant]
     Active Substance: IRINOTECAN
     Indication: COLORECTAL CANCER
     Dosage: DAILY DOSE: 200 MG MILLGRAM(S) EVERY 3 WEEKS
     Route: 042
     Dates: start: 20161128, end: 20170421
  23. PANTOPRAZOLE [Concomitant]
     Active Substance: PANTOPRAZOLE
     Dosage: DAILY DOSE: 40 MG MILLGRAM(S) EVERY DAYS
     Route: 048
     Dates: start: 20151123
  24. NITRENDIPINE [Concomitant]
     Active Substance: NITRENDIPINE
     Indication: HYPERTENSION
     Dosage: DAILY DOSE: 20 MG MILLGRAM(S) EVERY DAYS
     Route: 048
     Dates: start: 2007
  25. ALIZAPRIDE [Concomitant]
     Active Substance: ALIZAPRIDE
     Indication: NAUSEA
     Dosage: DAILY DOSE: 150 MG MILLGRAM(S) EVERY DAYS
     Route: 048
     Dates: start: 20151128
  26. MARCUMAR [Concomitant]
     Active Substance: PHENPROCOUMON
     Indication: ATRIAL FIBRILLATION
     Dosage: ALSO RECEIVED ORALLY ACCORDING TO QUICK VALUE
     Route: 058
     Dates: start: 20151218, end: 20160922

REACTIONS (29)
  - Dyspnoea [Recovered/Resolved]
  - Hip arthroplasty [Not Recovered/Not Resolved]
  - Blood bilirubin increased [Not Recovered/Not Resolved]
  - Dry mouth [Recovered/Resolved]
  - Constipation [Recovered/Resolved]
  - Visual impairment [Not Recovered/Not Resolved]
  - Cystitis [Not Recovered/Not Resolved]
  - Alopecia [Unknown]
  - Skin ulcer [Unknown]
  - Sinus tachycardia [Recovered/Resolved]
  - Flank pain [Recovered/Resolved]
  - Fatigue [Not Recovered/Not Resolved]
  - Oedema peripheral [Not Recovered/Not Resolved]
  - Nausea [Recovered/Resolved]
  - Mucosal inflammation [Unknown]
  - Polyneuropathy [Not Recovered/Not Resolved]
  - Incisional hernia [Unknown]
  - Diarrhoea [Recovered/Resolved]
  - Jaundice [Unknown]
  - Palmar-plantar erythrodysaesthesia syndrome [Unknown]
  - Proteinuria [Not Recovered/Not Resolved]
  - Dysgeusia [Recovered/Resolved]
  - Weight decreased [Not Recovered/Not Resolved]
  - Nail bed inflammation [Unknown]
  - Decreased appetite [Recovered/Resolved]
  - Blood uric acid increased [Recovered/Resolved]
  - Insomnia [Recovered/Resolved]
  - Gamma-glutamyltransferase increased [Not Recovered/Not Resolved]
  - Prothrombin time prolonged [Recovered/Resolved]

NARRATIVE: CASE EVENT DATE: 20151127
